FAERS Safety Report 7387881-7 (Version None)
Quarter: 2011Q1

REPORT INFORMATION
  Report Type: 
  Country: None (occurrence: None)
  Receive Date: 20110331
  Receipt Date: 20110324
  Transmission Date: 20110831
  Serious: Yes (Death, Hospitalization)
  Sender: FDA-Public Use
  Company Number: US-GILEAD-2011-0034991

PATIENT
  Sex: Male

DRUGS (3)
  1. LETAIRIS [Suspect]
     Indication: PULMONARY HYPERTENSION
     Route: 048
     Dates: start: 20090417, end: 20110113
  2. LETAIRIS [Suspect]
     Indication: CREST SYNDROME
  3. REMODULIN [Concomitant]

REACTIONS (3)
  - OEDEMA [None]
  - MULTI-ORGAN FAILURE [None]
  - MEDICAL DEVICE COMPLICATION [None]
